APPROVED DRUG PRODUCT: FLUOCINONIDE
Active Ingredient: FLUOCINONIDE
Strength: 0.1%
Dosage Form/Route: CREAM;TOPICAL
Application: A200734 | Product #001 | TE Code: AB
Applicant: SUN PHARMA CANADA INC
Approved: Jul 14, 2014 | RLD: No | RS: No | Type: RX